FAERS Safety Report 15107359 (Version 6)
Quarter: 2018Q4

REPORT INFORMATION
  Report Type: Spontaneous
  Country: AR (occurrence: AR)
  Receive Date: 20180704
  Receipt Date: 20181023
  Transmission Date: 20190204
  Serious: Yes (Hospitalization, Other)
  Sender: FDA-Public Use
  Company Number: AR-ACTELION-A-CH2018-174428

PATIENT
  Age: 47 Year
  Sex: Female
  Weight: 140 kg

DRUGS (2)
  1. VELETRI [Suspect]
     Active Substance: EPOPROSTENOL
     Indication: PULMONARY ARTERIAL HYPERTENSION
     Dosage: 1.5 MG BOTTLE CONCENTRATION
     Route: 042
     Dates: start: 20180618
  2. VELETRI [Suspect]
     Active Substance: EPOPROSTENOL
     Dosage: 230 MG, QD
     Route: 042

REACTIONS (18)
  - General physical condition abnormal [Recovered/Resolved]
  - Hypotension [Recovered/Resolved]
  - Oxygen consumption increased [Unknown]
  - Chest discomfort [Unknown]
  - Bone pain [Unknown]
  - Dizziness [Unknown]
  - Blood pressure fluctuation [Unknown]
  - Hot flush [Unknown]
  - Nausea [Unknown]
  - Peripheral swelling [Unknown]
  - Swelling [Recovering/Resolving]
  - Overdose [Unknown]
  - Fluid retention [Unknown]
  - Dyspnoea [Recovered/Resolved]
  - Syncope [Recovered/Resolved]
  - Fatigue [Unknown]
  - Headache [Unknown]
  - Pain [Unknown]

NARRATIVE: CASE EVENT DATE: 20180621
